FAERS Safety Report 7545025-2 (Version None)
Quarter: 2011Q2

REPORT INFORMATION
  Report Type: 
  Country: None (occurrence: None)
  Receive Date: 20110614
  Receipt Date: 20110516
  Transmission Date: 20111010
  Serious: Yes (Other)
  Sender: FDA-Public Use
  Company Number: US-BAYER-2011-018394

PATIENT
  Age: 29 Year
  Sex: Female
  Weight: 57.143 kg

DRUGS (2)
  1. DARVOCET [Concomitant]
     Dosage: UNK
     Dates: start: 20090227
  2. YAZ [Suspect]
     Indication: CONTRACEPTION
     Dosage: UNK
     Route: 048
     Dates: start: 20081022, end: 20090514

REACTIONS (3)
  - CHOLECYSTITIS CHRONIC [None]
  - GALLBLADDER DISORDER [None]
  - THROMBOSIS [None]
